FAERS Safety Report 5367912-6 (Version None)
Quarter: 2007Q2

REPORT INFORMATION
  Report Type: 
  Country: None (occurrence: None)
  Receive Date: 20070622
  Receipt Date: 20070611
  Transmission Date: 20071010
  Serious: Yes (Hospitalization)
  Sender: FDA-Public Use
  Company Number: FR-PFIZER INC-2007048267

PATIENT
  Age: 75 Year
  Sex: Female

DRUGS (6)
  1. ZARONTIN [Suspect]
     Route: 048
  2. GARDENALE [Suspect]
     Route: 048
  3. LASIX [Suspect]
     Route: 048
  4. TEGRETOL [Suspect]
     Dosage: TEXT:2 DF
     Route: 048
  5. EPREX [Suspect]
     Dates: start: 20070322, end: 20070420
  6. OMEPRAZOLE [Suspect]
     Dosage: TEXT:1 DF
     Route: 048

REACTIONS (1)
  - VENOUS THROMBOSIS [None]
